FAERS Safety Report 9386211 (Version 1)
Quarter: 2013Q3

REPORT INFORMATION
  Report Type: Spontaneous
  Country: FR (occurrence: FR)
  Receive Date: 20130708
  Receipt Date: 20130708
  Transmission Date: 20140515
  Serious: Yes (Other)
  Sender: FDA-Public Use
  Company Number: FR-PFIZER INC-2013196618

PATIENT
  Age: 30 Year
  Sex: Male
  Weight: 86 kg

DRUGS (4)
  1. METHYLPREDNISOLONE SODIUM SUCCINATE [Suspect]
     Indication: ALOPECIA AREATA
     Dosage: 1 G PER DAY ON ALTERNATE WEEKS FOR 13 WEEKS (7G IN TOTAL)
     Route: 040
     Dates: start: 201008, end: 2010
  2. BETAMETHASONE DIPROPIONATE [Suspect]
     Indication: ALOPECIA AREATA
     Dosage: UNK
     Route: 061
     Dates: start: 2009
  3. BETAMETHASONE [Suspect]
     Dosage: 1 ML, SINGLE
     Route: 030
     Dates: start: 201107, end: 201107
  4. VITAMIN B6 [Concomitant]
     Indication: ALOPECIA AREATA
     Dosage: UNK
     Route: 026
     Dates: start: 2009

REACTIONS (2)
  - Adrenal insufficiency [Unknown]
  - Drug ineffective [Unknown]
